FAERS Safety Report 5012534-X (Version None)
Quarter: 2006Q2

REPORT INFORMATION
  Report Type: 
  Country: None (occurrence: None)
  Receive Date: 20060526
  Receipt Date: 20060518
  Transmission Date: 20061013
  Serious: Yes (Hospitalization)
  Sender: FDA-Public Use
  Company Number: TN-MERCK-0605USA03727

PATIENT
  Age: 71 Year
  Sex: Female

DRUGS (1)
  1. INDOCIN [Suspect]
     Indication: RHEUMATOID ARTHRITIS
     Route: 048

REACTIONS (3)
  - HYPERBILIRUBINAEMIA [None]
  - HYPOCALCAEMIA [None]
  - PANCREATITIS NECROTISING [None]
